FAERS Safety Report 4440012-5 (Version None)
Quarter: 2004Q3

REPORT INFORMATION
  Report Type: 
  Country: None (occurrence: None)
  Receive Date: 20040901
  Receipt Date: 20040818
  Transmission Date: 20050211
  Serious: Yes (Death, Hospitalization, Other)
  Sender: FDA-Public Use
  Company Number: A-US2004-06670

PATIENT
  Age: 46 Year
  Sex: Male
  Weight: 62.6 kg

DRUGS (10)
  1. TRACLEER [Suspect]
     Indication: PULMONARY HYPERTENSION
     Dosage: 125 MG, BID, ORAL : 62.5 MG BID ,ORAL
     Route: 048
     Dates: start: 20021017, end: 20021112
  2. TRACLEER [Suspect]
     Indication: PULMONARY HYPERTENSION
     Dosage: 125 MG, BID, ORAL : 62.5 MG BID ,ORAL
     Route: 048
     Dates: start: 20021113, end: 20040623
  3. REMODULIN(TREPOSTINIL SODIUM) [Suspect]
     Indication: PULMONARY HYPERTENSION
     Dosage: INTRAVENOUS
     Route: 042
     Dates: start: 20040510, end: 20040613
  4. LASIX [Concomitant]
  5. ZAROXOLYN [Concomitant]
  6. PREVACID [Concomitant]
  7. EFFEXOR [Concomitant]
  8. K-TAB [Concomitant]
  9. ALDACTONE [Concomitant]
  10. MAGNESIUM SULFATE [Concomitant]

REACTIONS (11)
  - ALANINE AMINOTRANSFERASE INCREASED [None]
  - ASPARTATE AMINOTRANSFERASE INCREASED [None]
  - BLOOD ALKALINE PHOSPHATASE INCREASED [None]
  - BLOOD BILIRUBIN INCREASED [None]
  - BRADYCARDIA [None]
  - INJECTION SITE PAIN [None]
  - OEDEMA PERIPHERAL [None]
  - PULMONARY HYPERTENSION [None]
  - RENAL FAILURE [None]
  - RESPIRATORY FAILURE [None]
  - SCROTAL OEDEMA [None]
